FAERS Safety Report 4733819-8 (Version None)
Quarter: 2005Q3

REPORT INFORMATION
  Report Type: 
  Country: None (occurrence: None)
  Receive Date: 20050729
  Receipt Date: 20050628
  Transmission Date: 20060218
  Serious: No
  Sender: FDA-Public Use
  Company Number: MK200506-0364-1

PATIENT
  Age: 49 Year
  Sex: Male

DRUGS (2)
  1. NEUTROSPEC [Suspect]
     Indication: INFECTION
     Dosage: 18.6 MCI, ONE TIME, IV
     Route: 042
     Dates: start: 20050607, end: 20050607
  2. NEUTROSPEC [Suspect]
     Indication: MEDICAL DEVICE COMPLICATION
     Dosage: 18.6 MCI, ONE TIME, IV
     Route: 042
     Dates: start: 20050607, end: 20050607

REACTIONS (1)
  - FLUSHING [None]
